FAERS Safety Report 7751968-7 (Version None)
Quarter: 2011Q3

REPORT INFORMATION
  Report Type: 
  Country: None (occurrence: None)
  Receive Date: 20110915
  Receipt Date: 20110914
  Transmission Date: 20111222
  Serious: Yes (Hospitalization)
  Sender: FDA-Public Use
  Company Number: IT-SANOFI-AVENTIS-2011SA056956

PATIENT
  Age: 87 Year
  Sex: Male

DRUGS (8)
  1. FLURAZEPAM HYDROCHLORIDE [Suspect]
     Route: 048
     Dates: end: 20110823
  2. PREDNISONE [Concomitant]
     Route: 048
  3. SIMVASTATIN [Concomitant]
     Route: 048
  4. FLURAZEPAM HYDROCHLORIDE [Suspect]
     Route: 048
     Dates: start: 20110824, end: 20110824
  5. LASIX [Concomitant]
     Route: 048
  6. PLAVIX [Suspect]
     Route: 048
     Dates: start: 20110824, end: 20110824
  7. FLURAZEPAM HYDROCHLORIDE [Suspect]
     Route: 048
     Dates: end: 20110823
  8. FLURAZEPAM HYDROCHLORIDE [Suspect]
     Route: 048
     Dates: start: 20110824, end: 20110824

REACTIONS (5)
  - FALL [None]
  - LOSS OF CONSCIOUSNESS [None]
  - HEAD INJURY [None]
  - SUICIDE ATTEMPT [None]
  - MULTIPLE DRUG OVERDOSE INTENTIONAL [None]
